FAERS Safety Report 11528421 (Version 1)
Quarter: 2015Q3

REPORT INFORMATION
  Report Type: Spontaneous
  Country: US (occurrence: US)
  Receive Date: 20150921
  Receipt Date: 20150921
  Transmission Date: 20151125
  Serious: No
  Sender: FDA-Public Use
  Company Number: US-TEVA-553214USA

PATIENT
  Sex: Female

DRUGS (3)
  1. CLONAZEPAM. [Suspect]
     Active Substance: CLONAZEPAM
     Route: 065
  2. ROPINIROLE. [Suspect]
     Active Substance: ROPINIROLE
     Route: 065
  3. CLOMETHIAZOLE [Suspect]
     Active Substance: CLOMETHIAZOLE
     Route: 065

REACTIONS (7)
  - Gait disturbance [Unknown]
  - Drug ineffective [Unknown]
  - Amnesia [Unknown]
  - Somnambulism [Unknown]
  - Abnormal behaviour [Unknown]
  - Restless legs syndrome [Unknown]
  - Hangover [Unknown]
